FAERS Safety Report 6925156-8 (Version None)
Quarter: 2010Q3

REPORT INFORMATION
  Report Type: 
  Country: None (occurrence: None)
  Receive Date: 20100816
  Receipt Date: 20100726
  Transmission Date: 20110219
  Serious: No
  Sender: FDA-Public Use
  Company Number: US-PFIZER INC-2010093666

PATIENT
  Sex: Female
  Weight: 65 kg

DRUGS (8)
  1. XALATAN [Suspect]
     Indication: GLAUCOMA
     Dosage: 1 GTT, 1X/DAY
     Route: 047
  2. COMBIGAN [Suspect]
     Indication: INTRAOCULAR PRESSURE INCREASED
     Dosage: 1 GTT, 2X/DAY
     Route: 047
  3. TRAMADOL HYDROCHLORIDE AND ACETAMINOPHEN [Concomitant]
     Indication: BONE PAIN
     Dosage: 37.5/325 MG
  4. VITAMIN B COMPLEX CAP [Concomitant]
     Indication: HERPES ZOSTER
     Dosage: UNK
  5. VITAMIN B COMPLEX CAP [Concomitant]
     Indication: NEUROPATHY PERIPHERAL
  6. ADVIL LIQUI-GELS [Concomitant]
     Indication: OSTEOARTHRITIS
     Dosage: UNK
     Route: 048
  7. ADVIL LIQUI-GELS [Concomitant]
     Indication: BACK PAIN
  8. SYSTANE [Concomitant]
     Indication: DRY EYE
     Dosage: UNK
     Route: 047

REACTIONS (4)
  - EYELASH DISCOLOURATION [None]
  - HYPERSOMNIA [None]
  - SCLERAL DISCOLOURATION [None]
  - SKIN IRRITATION [None]
